FAERS Safety Report 11107161 (Version 1)
Quarter: 2015Q2

REPORT INFORMATION
  Report Type: Spontaneous
  Country: US (occurrence: US)
  Receive Date: 20150512
  Receipt Date: 20150512
  Transmission Date: 20150821
  Serious: No
  Sender: FDA-Public Use
  Company Number: US-009507513-1504USA023157

PATIENT
  Sex: Female
  Weight: 59 kg

DRUGS (1)
  1. SIMVASTATIN TABLETS, USP [Suspect]
     Active Substance: SIMVASTATIN
     Dosage: UNK
     Route: 048

REACTIONS (2)
  - Myalgia [Unknown]
  - Muscle spasms [Unknown]
